FAERS Safety Report 10357799 (Version 2)
Quarter: 2014Q3

REPORT INFORMATION
  Report Type: Spontaneous
  Country: US (occurrence: US)
  Receive Date: 20140801
  Receipt Date: 20140827
  Transmission Date: 20150326
  Serious: No
  Sender: FDA-Public Use
  Company Number: US-PFIZER INC-2014212396

PATIENT
  Sex: Female

DRUGS (6)
  1. IBUPROFEN. [Suspect]
     Active Substance: IBUPROFEN
     Dosage: UNK
  2. METROGEL [Suspect]
     Active Substance: METRONIDAZOLE
     Dosage: UNK
  3. FLAGYL [Suspect]
     Active Substance: METRONIDAZOLE\METRONIDAZOLE HYDROCHLORIDE
     Dosage: UNK
  4. PREGABALIN. [Suspect]
     Active Substance: PREGABALIN
     Dosage: UNK
  5. GENTAMYCIN [Suspect]
     Active Substance: GENTAMICIN
     Dosage: UNK
  6. ASA [Suspect]
     Active Substance: ASPIRIN
     Dosage: UNK

REACTIONS (1)
  - Drug hypersensitivity [Unknown]
